FAERS Safety Report 7597435-5 (Version None)
Quarter: 2011Q3

REPORT INFORMATION
  Report Type: 
  Country: None (occurrence: None)
  Receive Date: 20110708
  Receipt Date: 20110627
  Transmission Date: 20111222
  Serious: Yes (Hospitalization)
  Sender: FDA-Public Use
  Company Number: PHHY2011JP58349

PATIENT
  Age: 82 Year
  Sex: Female

DRUGS (1)
  1. ZOMETA [Suspect]
     Indication: METASTASES TO BONE
     Dosage: UNK
     Route: 041
     Dates: start: 20060101

REACTIONS (5)
  - PYREXIA [None]
  - OSTEOMYELITIS [None]
  - JAW DISORDER [None]
  - OSTEONECROSIS OF JAW [None]
  - PAIN IN JAW [None]
